FAERS Safety Report 24600538 (Version 1)
Quarter: 2024Q4

REPORT INFORMATION
  Report Type: Report from Study
  Country: US (occurrence: US)
  Receive Date: 20241110
  Receipt Date: 20241110
  Transmission Date: 20250115
  Serious: Yes (Other)
  Sender: JOHNSON AND JOHNSON
  Company Number: US-JNJFOC-20241109213

PATIENT
  Age: 33 Year
  Sex: Female

DRUGS (5)
  1. SPRAVATO [Suspect]
     Active Substance: ESKETAMINE
     Indication: Depression
     Dosage: ^56 MG, 2 TOTAL DOSES^
     Dates: start: 20240325, end: 20240328
  2. SPRAVATO [Suspect]
     Active Substance: ESKETAMINE
     Dosage: ^84 MG, 22 TOTAL DOSES^
     Dates: start: 20240401, end: 20240705
  3. SPRAVATO [Suspect]
     Active Substance: ESKETAMINE
     Dosage: ^56 MG, 1 TOTAL DOSE^
     Dates: start: 20240712, end: 20240712
  4. SPRAVATO [Suspect]
     Active Substance: ESKETAMINE
     Dosage: ^84 MG, 13 TOTAL DOSES^
     Dates: start: 20240718, end: 20241025
  5. SPRAVATO [Suspect]
     Active Substance: ESKETAMINE
     Dosage: ^84 MG, 1 TOTAL DOSE, RECENT DOSE^
     Dates: start: 20241101, end: 20241101

REACTIONS (3)
  - Dizziness [Unknown]
  - Vomiting [Unknown]
  - Nausea [Unknown]

NARRATIVE: CASE EVENT DATE: 20241101
